FAERS Safety Report 16684663 (Version 1)
Quarter: 2019Q3

REPORT INFORMATION
  Report Type: Report from Study
  Country: US (occurrence: US)
  Receive Date: 20190808
  Receipt Date: 20190808
  Transmission Date: 20191004
  Serious: Yes (Other)
  Sender: FDA-Public Use
  Company Number: US-JNJFOC-20190235905

PATIENT
  Age: 82 Year
  Sex: Male

DRUGS (5)
  1. WARFARIN [Interacting]
     Active Substance: WARFARIN
     Indication: PRODUCT USED FOR UNKNOWN INDICATION
     Dates: end: 20190226
  2. IMBRUVICA [Suspect]
     Active Substance: IBRUTINIB
     Route: 065
  3. IMBRUVICA [Suspect]
     Active Substance: IBRUTINIB
     Route: 065
  4. IMBRUVICA [Suspect]
     Active Substance: IBRUTINIB
     Indication: CHRONIC LYMPHOCYTIC LEUKAEMIA
     Route: 048
     Dates: start: 20190214, end: 20190225
  5. IMBRUVICA [Suspect]
     Active Substance: IBRUTINIB
     Route: 048
     Dates: start: 20190416

REACTIONS (14)
  - Peripheral swelling [Recovering/Resolving]
  - Skin lesion [Unknown]
  - Pain [Unknown]
  - Contusion [Recovering/Resolving]
  - Drug interaction [Unknown]
  - Gastroenteritis viral [Unknown]
  - Diarrhoea [Unknown]
  - Irritability [Unknown]
  - Erythema [Unknown]
  - Vomiting [Unknown]
  - White blood cell count decreased [Recovering/Resolving]
  - Fatigue [Unknown]
  - Fear [Unknown]
  - Joint swelling [Recovering/Resolving]

NARRATIVE: CASE EVENT DATE: 201904
